FAERS Safety Report 9093197 (Version 1)
Quarter: 2013Q1

REPORT INFORMATION
  Report Type: Report from Study
  Country: US (occurrence: US)
  Receive Date: 20130131
  Receipt Date: 20130131
  Transmission Date: 20140127
  Serious: No
  Sender: FDA-Public Use
  Company Number: US-ABBOTT-12P-163-1002882-00

PATIENT
  Age: 64 Year
  Sex: Female

DRUGS (5)
  1. HUMIRA [Suspect]
     Indication: PSORIASIS
     Route: 058
     Dates: start: 20120817
  2. HUMIRA [Suspect]
     Indication: PSORIATIC ARTHROPATHY
  3. ABREVA [Concomitant]
     Indication: ORAL HERPES
  4. LYSINE [Concomitant]
     Indication: ORAL HERPES
     Dosage: DAILY
     Route: 048
  5. METFORMIN [Concomitant]
     Indication: DIABETES MELLITUS
     Dosage: CAUSED PATIENT TO HAVE DIARRHEA
     Route: 048
     Dates: start: 201209, end: 20121028

REACTIONS (4)
  - Diarrhoea [Not Recovered/Not Resolved]
  - Dizziness [Not Recovered/Not Resolved]
  - Food poisoning [Not Recovered/Not Resolved]
  - Vomiting [Recovered/Resolved]
